FAERS Safety Report 18234207 (Version 1)
Quarter: 2020Q3

REPORT INFORMATION
  Report Type: Spontaneous
  Country: KR (occurrence: KR)
  Receive Date: 20200904
  Receipt Date: 20200904
  Transmission Date: 20201103
  Serious: Yes (Other)
  Sender: FDA-Public Use
  Company Number: KR-ABBVIE-20K-090-3549264-00

PATIENT
  Age: 78 Year
  Sex: Male

DRUGS (12)
  1. METHYLPREDNISOLONE. [Concomitant]
     Active Substance: METHYLPREDNISOLONE
     Indication: ACUTE RESPIRATORY DISTRESS SYNDROME
     Dates: start: 20200319, end: 20200320
  2. MEROPENEM. [Concomitant]
     Active Substance: MEROPENEM
     Indication: ANTIBIOTIC THERAPY
     Dates: start: 20200305, end: 20200318
  3. METHYLPREDNISOLONE. [Concomitant]
     Active Substance: METHYLPREDNISOLONE
     Indication: PULMONARY FIBROSIS
     Dates: start: 20200306, end: 20200308
  4. CEFTRIAXONE. [Concomitant]
     Active Substance: CEFTRIAXONE
     Indication: COVID-19
     Dates: start: 20200304, end: 20200304
  5. VANCOMYCIN [Concomitant]
     Active Substance: VANCOMYCIN
     Indication: ANTIBIOTIC THERAPY
     Dates: start: 20200305, end: 20200307
  6. HYDROXYCHLOROQUINE [Suspect]
     Active Substance: HYDROXYCHLOROQUINE
     Indication: COVID-19
     Route: 065
     Dates: start: 20200305, end: 20200311
  7. PIPERACILLIN/TAZOBACTAM [Concomitant]
     Active Substance: PIPERACILLIN SODIUM\TAZOBACTAM SODIUM
     Indication: COVID-19
     Dates: start: 20200305, end: 20200305
  8. PERAMIVIR [Concomitant]
     Active Substance: PERAMIVIR
     Indication: COVID-19
     Dates: start: 20200309, end: 20200314
  9. LEVOFLOXACIN. [Concomitant]
     Active Substance: LEVOFLOXACIN
     Indication: COVID-19
     Dates: start: 20200305, end: 20200312
  10. PARACETAMOL [Concomitant]
     Active Substance: ACETAMINOPHEN
     Indication: PYREXIA
     Dates: start: 202003
  11. TEICOPLANIN [Concomitant]
     Active Substance: TEICOPLANIN
     Indication: COVID-19
     Dates: start: 20200308, end: 20200318
  12. KALETRA [Suspect]
     Active Substance: LOPINAVIR\RITONAVIR
     Indication: COVID-19
     Dosage: LOPINAVIR 200 MG/RITONAVIR 50 MG
     Route: 048
     Dates: start: 20200228, end: 20200318

REACTIONS (3)
  - Off label use [Unknown]
  - Drug ineffective [Unknown]
  - Pneumonia [Recovering/Resolving]

NARRATIVE: CASE EVENT DATE: 2020
